FAERS Safety Report 6723209-0 (Version None)
Quarter: 2010Q2

REPORT INFORMATION
  Report Type: 
  Country: None (occurrence: None)
  Receive Date: 20100513
  Receipt Date: 20100505
  Transmission Date: 20101027
  Serious: Yes (Other)
  Sender: FDA-Public Use
  Company Number: US-JNJFOC-20060906194

PATIENT
  Sex: Female
  Weight: 115.21 kg

DRUGS (15)
  1. RISPERDAL [Suspect]
     Indication: MAJOR DEPRESSION
  2. RISPERDAL [Suspect]
     Indication: AFFECTIVE DISORDER
  3. RISPERDAL [Suspect]
     Indication: SLEEP DISORDER THERAPY
  4. RISPERDAL [Suspect]
     Indication: ANXIETY
  5. SEROQUEL [Suspect]
     Indication: MAJOR DEPRESSION
     Route: 065
  6. SEROQUEL [Suspect]
     Indication: AFFECTIVE DISORDER
     Route: 065
  7. SEROQUEL [Suspect]
     Indication: SLEEP DISORDER THERAPY
     Route: 065
  8. SEROQUEL [Suspect]
     Indication: ANXIETY
     Route: 065
  9. NEXIUM [Concomitant]
  10. PROTONIX [Concomitant]
  11. PROVENTIL [Concomitant]
  12. TRIESTROGEN [Concomitant]
  13. BUSPAR [Concomitant]
  14. KLONOPIN [Concomitant]
  15. SERZONE [Concomitant]

REACTIONS (4)
  - MYOCARDIAL INFARCTION [None]
  - SEDATION [None]
  - TYPE 2 DIABETES MELLITUS [None]
  - WEIGHT INCREASED [None]
